FAERS Safety Report 5653111-7 (Version None)
Quarter: 2008Q1

REPORT INFORMATION
  Report Type: 
  Country: None (occurrence: None)
  Receive Date: 20080131
  Receipt Date: 20071212
  Transmission Date: 20080703
  Serious: No
  Sender: FDA-Public Use
  Company Number: US200710006064

PATIENT
  Age: 59 Year
  Sex: Female

DRUGS (10)
  1. BYETTA [Suspect]
     Dosage: 5 UG, 2/D ; 10 UG, 2/D, SUBCUTANEOUS ; 5 UG, 2/D, SUBCUTANEOUS ; 10 UG, 2/D, SUBCUTANEOUS
     Route: 058
     Dates: start: 20060901, end: 20061001
  2. BYETTA [Suspect]
     Dosage: 5 UG, 2/D ; 10 UG, 2/D, SUBCUTANEOUS ; 5 UG, 2/D, SUBCUTANEOUS ; 10 UG, 2/D, SUBCUTANEOUS
     Route: 058
     Dates: start: 20061001, end: 20071009
  3. BYETTA [Suspect]
     Dosage: 5 UG, 2/D ; 10 UG, 2/D, SUBCUTANEOUS ; 5 UG, 2/D, SUBCUTANEOUS ; 10 UG, 2/D, SUBCUTANEOUS
     Route: 058
     Dates: start: 20071101, end: 20071201
  4. BYETTA [Suspect]
     Dosage: 5 UG, 2/D ; 10 UG, 2/D, SUBCUTANEOUS ; 5 UG, 2/D, SUBCUTANEOUS ; 10 UG, 2/D, SUBCUTANEOUS
     Route: 058
     Dates: start: 20071201
  5. LANTUS [Concomitant]
  6. HUMALOG [Concomitant]
  7. METFORMIN HCL [Concomitant]
  8. CARDIZEM [Concomitant]
  9. DIGOXIN [Concomitant]
  10. COUMADIN [Concomitant]

REACTIONS (10)
  - ATRIAL FIBRILLATION [None]
  - BLOOD GLUCOSE DECREASED [None]
  - BRONCHITIS [None]
  - CATARACT [None]
  - MALAISE [None]
  - NAUSEA [None]
  - PNEUMONIA [None]
  - VISUAL ACUITY REDUCED [None]
  - VOMITING [None]
  - WEIGHT INCREASED [None]
